FAERS Safety Report 12994213 (Version 2)
Quarter: 2016Q4

REPORT INFORMATION
  Report Type: Spontaneous
  Country: BR (occurrence: BR)
  Receive Date: 20161202
  Receipt Date: 20161229
  Transmission Date: 20170207
  Serious: Yes (Other)
  Sender: FDA-Public Use
  Company Number: BR-PFIZER INC-2016551644

PATIENT
  Age: 64 Year
  Sex: Female
  Weight: 82 kg

DRUGS (9)
  1. METFORMIN [Concomitant]
     Active Substance: METFORMIN HYDROCHLORIDE
     Indication: DIABETES MELLITUS
     Dosage: 3 TABLETS PER DAY
     Route: 048
  2. ATROPINE. [Concomitant]
     Active Substance: ATROPINE
     Dosage: 1 DROP IN THE LEFT EYE 2X/DAY
     Route: 047
  3. COSOPT [Concomitant]
     Active Substance: DORZOLAMIDE HYDROCHLORIDE\TIMOLOL MALEATE
     Dosage: 2 DROPS IN RIGHT EYE
     Route: 047
  4. GABAPENTIN. [Concomitant]
     Active Substance: GABAPENTIN
     Indication: NEURITIS
     Dosage: 3 TABLETS PER DAY
     Route: 048
  5. DIAMICRON [Concomitant]
     Active Substance: GLICLAZIDE
     Indication: DIABETES MELLITUS
     Dosage: 2 TABLETS IN THE MORNING
     Route: 048
  6. XALATAN [Suspect]
     Active Substance: LATANOPROST
     Indication: INTRAOCULAR PRESSURE INCREASED
     Dosage: 1 DROP IN THE RIGHT EYE IN THE MORNING
     Route: 047
     Dates: start: 2004
  7. GABAPENTIN. [Concomitant]
     Active Substance: GABAPENTIN
     Indication: PAIN IN EXTREMITY
  8. XALATAN [Suspect]
     Active Substance: LATANOPROST
     Indication: GLAUCOMA
  9. INSULIN NPH /01223208/ [Concomitant]
     Indication: DIABETES MELLITUS
     Dosage: 30 IU IN THE MORNING, 30 IU BEFORE MEAL, 30 IU BEFORE SLEEPING

REACTIONS (3)
  - Retinal detachment [Not Recovered/Not Resolved]
  - Visual acuity reduced [Not Recovered/Not Resolved]
  - Visual impairment [Not Recovered/Not Resolved]

NARRATIVE: CASE EVENT DATE: 2008
